FAERS Safety Report 7821373-3 (Version None)
Quarter: 2011Q4

REPORT INFORMATION
  Report Type: 
  Country: None (occurrence: None)
  Receive Date: 20111018
  Receipt Date: 20111014
  Transmission Date: 20120403
  Serious: No
  Sender: FDA-Public Use
  Company Number: US-TEVA-305185USA

PATIENT
  Sex: Female
  Weight: 48.578 kg

DRUGS (4)
  1. LOVASTATIN [Concomitant]
     Dosage: 10 MILLIGRAM;
  2. ASPIRIN [Concomitant]
  3. ESTRADIOL [Concomitant]
  4. AZILECT [Suspect]
     Indication: PARKINSON'S DISEASE
     Dosage: 0.5 MG DAILY
     Route: 048
     Dates: start: 20111010

REACTIONS (1)
  - SOMNOLENCE [None]
